FAERS Safety Report 21132739 (Version 4)
Quarter: 2022Q3

REPORT INFORMATION
  Report Type: Report from Study
  Country: US (occurrence: US)
  Receive Date: 20220726
  Receipt Date: 20220823
  Transmission Date: 20221026
  Serious: Yes (Other)
  Sender: FDA-Public Use
  Company Number: US-NOVARTISPH-NVSC2022US168031

PATIENT
  Sex: Male

DRUGS (1)
  1. ENTRESTO [Suspect]
     Active Substance: SACUBITRIL\VALSARTAN
     Indication: Product used for unknown indication
     Dosage: 1 DF (49/51 MG)
     Route: 065

REACTIONS (4)
  - Neuropathy peripheral [Unknown]
  - Gait disturbance [Unknown]
  - Fall [Unknown]
  - Hypoaesthesia [Unknown]
